FAERS Safety Report 14672702 (Version 6)
Quarter: 2024Q2

REPORT INFORMATION
  Report Type: Spontaneous
  Country: IT (occurrence: IT)
  Receive Date: 20180323
  Receipt Date: 20240420
  Transmission Date: 20240715
  Serious: Yes (Hospitalization)
  Sender: FDA-Public Use
  Company Number: None

PATIENT
  Age: 71 Year
  Sex: Male
  Weight: 92 kg

DRUGS (7)
  1. SIMVASTATIN [Suspect]
     Active Substance: SIMVASTATIN
     Indication: Dyslipidaemia
     Route: 048
     Dates: end: 2018
  2. PANTOPRAZOLE [Suspect]
     Active Substance: PANTOPRAZOLE
     Indication: Gastrooesophageal reflux disease
     Dosage: DOSE DESCRIPTION : 40 MG,QD
     Route: 048
     Dates: start: 20171101, end: 2018
  3. LEVOFLOXACIN [Suspect]
     Active Substance: LEVOFLOXACIN
     Indication: Influenza
     Dosage: DOSE DESCRIPTION : 500 MG,QD
     Dates: start: 20180115, end: 20180119
  4. ASPIRIN [Concomitant]
     Active Substance: ASPIRIN
     Dosage: DOSE DESCRIPTION : 100 MG, QD
  5. CANDESARTAN CILEXETIL W/HYDROCHLORO [Concomitant]
     Dosage: DOSE DESCRIPTION : 32 MG, QD
  6. DOXAZOSIN [Concomitant]
     Active Substance: DOXAZOSIN MESYLATE
     Dosage: DOSE DESCRIPTION : 2 MG,QD
  7. VILANTEROL [Concomitant]
     Active Substance: VILANTEROL

REACTIONS (3)
  - Rhabdomyolysis [Recovering/Resolving]
  - Dyspnoea [Unknown]
  - Tachycardia [Unknown]

NARRATIVE: CASE EVENT DATE: 20180201
